FAERS Safety Report 24729459 (Version 1)
Quarter: 2024Q4

REPORT INFORMATION
  Report Type: Spontaneous
  Country: US (occurrence: US)
  Receive Date: 20241213
  Receipt Date: 20241213
  Transmission Date: 20250115
  Serious: No
  Sender: ACCORD
  Company Number: US-Accord-425346

PATIENT
  Sex: Female
  Weight: 56.7 kg

DRUGS (1)
  1. LEVOTHYROXINE [Suspect]
     Active Substance: LEVOTHYROXINE
     Indication: Hypothyroidism
     Dosage: DAILY IN THE MORNING
     Route: 048

REACTIONS (8)
  - Oropharyngeal discomfort [Recovering/Resolving]
  - Throat irritation [Recovering/Resolving]
  - Dizziness [Not Recovered/Not Resolved]
  - Hypertension [Recovering/Resolving]
  - Throat clearing [Recovering/Resolving]
  - Oropharyngeal pain [Recovering/Resolving]
  - Product solubility abnormal [Unknown]
  - Dyspnoea [Unknown]
